FAERS Safety Report 8472721-5 (Version None)
Quarter: 2012Q2

REPORT INFORMATION
  Report Type: 
  Country: None (occurrence: None)
  Receive Date: 20120627
  Receipt Date: 20120612
  Transmission Date: 20120825
  Serious: Yes (Death, Hospitalization, Other)
  Sender: FDA-Public Use
  Company Number: IT-PFIZER INC-2012141911

PATIENT
  Age: 64 Year
  Sex: Female

DRUGS (4)
  1. CISPLATIN [Suspect]
     Indication: LUNG ADENOCARCINOMA
     Dosage: 50MG/100ML (CYCLICAL)
     Route: 042
     Dates: start: 20110608, end: 20110609
  2. DESAMETASONE FOSFATO HOSPIRA [Concomitant]
     Indication: PROPHYLAXIS OF NAUSEA AND VOMITING
     Dosage: 8MG/2ML
     Dates: start: 20110608, end: 20110615
  3. GLUTATIONE SODICO [Concomitant]
     Indication: LUNG ADENOCARCINOMA
     Dosage: UNK
     Dates: start: 20110608, end: 20110609
  4. NAVELBINE [Suspect]
     Indication: LUNG ADENOCARCINOMA
     Dosage: 37.5 (10 MG/ML,CYCLICAL)
     Route: 042
     Dates: start: 20110608, end: 20110615

REACTIONS (2)
  - FEBRILE NEUTROPENIA [None]
  - DIARRHOEA [None]
